FAERS Safety Report 10233327 (Version 2)
Quarter: 2014Q2

REPORT INFORMATION
  Report Type: Spontaneous
  Country: FR (occurrence: FR)
  Receive Date: 20140612
  Receipt Date: 20140612
  Transmission Date: 20141212
  Serious: Yes (Life-Threatening)
  Sender: FDA-Public Use
  Company Number: FR-SHIONOGI, INC-2014000188

PATIENT
  Age: 65 Year
  Sex: Male

DRUGS (5)
  1. DORIBAX [Suspect]
     Indication: BACTERIAL SEPSIS
     Dosage: 3 G, QD
     Route: 041
     Dates: start: 20131128, end: 20140108
  2. TAVANIC [Suspect]
     Indication: BACTERIAL SEPSIS
     Dosage: DOSAGE FORM: UNSPECIFIED
     Route: 048
     Dates: start: 20131030, end: 20140108
  3. SOTALOL [Concomitant]
     Indication: PRODUCT USED FOR UNKNOWN INDICATION
     Dosage: DOSAGE FORM: UNSPECIFIED
     Route: 048
  4. TAREG [Concomitant]
     Indication: PRODUCT USED FOR UNKNOWN INDICATION
     Dosage: DOSAGE FORM: UNSPECIFIED
     Route: 048
  5. PRADAXA [Concomitant]
     Indication: PRODUCT USED FOR UNKNOWN INDICATION
     Dosage: UNK UNK, BID
     Route: 048

REACTIONS (2)
  - Agranulocytosis [Recovered/Resolved]
  - Oedema peripheral [Unknown]
